FAERS Safety Report 25439170 (Version 1)
Quarter: 2025Q2

REPORT INFORMATION
  Report Type: Spontaneous
  Country: US (occurrence: None)
  Receive Date: 20250612
  Receipt Date: 20250612
  Transmission Date: 20250716
  Serious: Yes (Other)
  Sender: FDA-CTU
  Company Number: None

PATIENT
  Age: 47 Year
  Sex: Male
  Weight: 77.85 kg

DRUGS (3)
  1. VALACYCLOVIR [Suspect]
     Active Substance: VALACYCLOVIR HYDROCHLORIDE
     Indication: Neuritis
     Dosage: 1000 MG TWICE A DAY ORAL ?
     Route: 048
     Dates: start: 20201121
  2. VALACYCLOVIR [Suspect]
     Active Substance: VALACYCLOVIR HYDROCHLORIDE
     Indication: Deafness
  3. VALACYCLOVIR [Suspect]
     Active Substance: VALACYCLOVIR HYDROCHLORIDE
     Indication: Tinnitus

REACTIONS (3)
  - Macrocytosis [None]
  - Red blood cell count decreased [None]
  - Ear discomfort [None]

NARRATIVE: CASE EVENT DATE: 20210204
